FAERS Safety Report 25446055 (Version 1)
Quarter: 2025Q2

REPORT INFORMATION
  Report Type: Report from Study
  Country: US (occurrence: US)
  Receive Date: 20250617
  Receipt Date: 20250617
  Transmission Date: 20250717
  Serious: Yes (Hospitalization)
  Sender: EISAI
  Company Number: US-Eisai-EC-2025-191297

PATIENT
  Age: 63 Year
  Sex: Female

DRUGS (2)
  1. LENVIMA [Suspect]
     Active Substance: LENVATINIB
     Indication: Endometrial cancer
     Dates: start: 202501, end: 2025
  2. LENVIMA [Suspect]
     Active Substance: LENVATINIB
     Dates: start: 2025, end: 202503

REACTIONS (3)
  - Gastrointestinal inflammation [Recovering/Resolving]
  - Pyrexia [Unknown]
  - Mental status changes [Unknown]

NARRATIVE: CASE EVENT DATE: 20250301
